FAERS Safety Report 4692840-9 (Version None)
Quarter: 2005Q2

REPORT INFORMATION
  Report Type: 
  Country: None (occurrence: None)
  Receive Date: 20050617
  Receipt Date: 20050610
  Transmission Date: 20051028
  Serious: Yes (Death, Other)
  Sender: FDA-Public Use
  Company Number: PHBS2005AT08453

PATIENT
  Age: 54 Year
  Sex: Female

DRUGS (3)
  1. CYCLOSPORINE [Suspect]
     Indication: RENAL TRANSPLANT
     Route: 065
  2. AZATHIOPRINE [Suspect]
     Indication: RENAL TRANSPLANT
     Route: 065
  3. CHEMOTHERAPEUTICS,OTHER [Suspect]
     Route: 065

REACTIONS (3)
  - BREAST CANCER [None]
  - ENDOCARDITIS BACTERIAL [None]
  - STAPHYLOCOCCAL INFECTION [None]
